FAERS Safety Report 6885787-0 (Version None)
Quarter: 2010Q3

REPORT INFORMATION
  Report Type: 
  Country: None (occurrence: None)
  Receive Date: 20100729
  Receipt Date: 20080603
  Transmission Date: 20110219
  Serious: No
  Sender: FDA-Public Use
  Company Number: US-PFIZER INC-2008038023

PATIENT
  Sex: Female
  Weight: 56.7 kg

DRUGS (11)
  1. CELEBREX [Suspect]
     Indication: ARTHRITIS
     Route: 048
     Dates: start: 20080201
  2. TOPROL-XL [Concomitant]
     Indication: HYPERTENSION
     Route: 048
  3. ALTACE [Concomitant]
     Indication: HYPERTENSION
     Route: 048
  4. LIPITOR [Concomitant]
     Indication: BLOOD CHOLESTEROL INCREASED
     Route: 048
  5. DETROL LA [Concomitant]
     Route: 048
  6. PLAVIX [Concomitant]
     Route: 048
  7. FOSAMAX [Concomitant]
     Route: 048
  8. VITAMIN D [Concomitant]
     Route: 048
  9. CALCIUM [Concomitant]
     Route: 048
  10. MAGNESIUM [Concomitant]
     Route: 048
  11. MULTI-VITAMINS [Concomitant]
     Route: 048

REACTIONS (1)
  - DIARRHOEA [None]
